FAERS Safety Report 15980302 (Version 1)
Quarter: 2019Q1

REPORT INFORMATION
  Report Type: Spontaneous
  Country: CA (occurrence: CA)
  Receive Date: 20190219
  Receipt Date: 20190219
  Transmission Date: 20190418
  Serious: Yes (Other)
  Sender: FDA-Public Use
  Company Number: CA-GLAXOSMITHKLINE-CA2019GSK029389

PATIENT
  Sex: Female
  Weight: 4 kg

DRUGS (11)
  1. NICOTINE. [Suspect]
     Active Substance: NICOTINE
     Indication: SMOKING CESSATION THERAPY
     Dosage: 20 MG, QD
     Route: 064
     Dates: start: 201701, end: 20171014
  2. SUBOXONE [Suspect]
     Active Substance: BUPRENORPHINE HYDROCHLORIDE\NALOXONE HYDROCHLORIDE
     Indication: DRUG DEPENDENCE
     Dosage: UNK, 8 TO 16 MG
     Route: 064
     Dates: start: 201701
  3. SUBUTEX [Suspect]
     Active Substance: BUPRENORPHINE HYDROCHLORIDE
     Indication: PRODUCT USED FOR UNKNOWN INDICATION
     Dosage: UNK
     Route: 063
     Dates: start: 20171015, end: 201710
  4. NICOTINE. [Suspect]
     Active Substance: NICOTINE
     Dosage: 20 MG, QD
     Route: 063
     Dates: start: 20171015, end: 201710
  5. CITALOPRAM [Suspect]
     Active Substance: CITALOPRAM HYDROBROMIDE
     Dosage: 20 MG, QD
     Route: 063
     Dates: start: 20171015, end: 201710
  6. BUPROPION HYDROCHLORIDE. [Suspect]
     Active Substance: BUPROPION HYDROCHLORIDE
     Dosage: UNK, 8 TO 16 MG
     Route: 064
     Dates: start: 201701, end: 201703
  7. CITALOPRAM [Suspect]
     Active Substance: CITALOPRAM HYDROBROMIDE
     Indication: DEPRESSION
     Dosage: 20 MG, QD
     Route: 064
     Dates: start: 201701, end: 20171014
  8. PERCOCET [Suspect]
     Active Substance: ACETAMINOPHEN\OXYCODONE HYDROCHLORIDE
     Indication: PRODUCT USED FOR UNKNOWN INDICATION
     Dosage: UNK
     Route: 064
     Dates: start: 201701, end: 20171014
  9. MARIJUANA [Concomitant]
     Active Substance: CANNABIS SATIVA SUBSP. INDICA TOP
     Indication: PRODUCT USED FOR UNKNOWN INDICATION
     Dosage: UNK
  10. BUPROPION HYDROCHLORIDE. [Suspect]
     Active Substance: BUPROPION HYDROCHLORIDE
     Indication: DRUG DEPENDENCE
     Dosage: UNK,
     Route: 064
     Dates: start: 20170323, end: 201710
  11. TETRAHYDROCANNABINOL [Concomitant]
     Active Substance: DRONABINOL
     Indication: PRODUCT USED FOR UNKNOWN INDICATION
     Dosage: UNK

REACTIONS (11)
  - Sneezing [Unknown]
  - Irritability [Unknown]
  - Poor feeding infant [Recovered/Resolved]
  - Respiratory distress [Unknown]
  - Drug withdrawal syndrome neonatal [Recovered/Resolved]
  - Tremor [Unknown]
  - Exposure via breast milk [Recovered/Resolved]
  - Yawning [Unknown]
  - Nasal congestion [Unknown]
  - Foetal exposure during pregnancy [Recovered/Resolved]
  - Hyperhidrosis [Unknown]
